FAERS Safety Report 14053057 (Version 2)
Quarter: 2019Q3

REPORT INFORMATION
  Report Type: Spontaneous
  Country: US (occurrence: US)
  Receive Date: 20171005
  Receipt Date: 20190731
  Transmission Date: 20191004
  Serious: Yes (Hospitalization)
  Sender: FDA-Public Use
  Company Number: US-JNJFOC-20170922675

PATIENT
  Age: 63 Year
  Sex: Female
  Weight: 55.39 kg

DRUGS (2)
  1. XARELTO [Suspect]
     Active Substance: RIVAROXABAN
     Indication: PULMONARY EMBOLISM
     Route: 048
     Dates: start: 20170824, end: 2017
  2. XARELTO [Suspect]
     Active Substance: RIVAROXABAN
     Route: 048
     Dates: start: 20170908, end: 20170912

REACTIONS (1)
  - Post procedural haematuria [Recovered/Resolved]

NARRATIVE: CASE EVENT DATE: 20170909
